FAERS Safety Report 25329720 (Version 2)
Quarter: 2025Q2

REPORT INFORMATION
  Report Type: Spontaneous
  Country: US (occurrence: US)
  Receive Date: 20250519
  Receipt Date: 20250523
  Transmission Date: 20250717
  Serious: Yes (Death)
  Sender: TEVA
  Company Number: US-TEVA-VS-3331382

PATIENT
  Sex: Female

DRUGS (5)
  1. AZACITIDINE [Suspect]
     Active Substance: AZACITIDINE
     Indication: Myelodysplastic syndrome
     Route: 065
  2. MAGROLIMAB [Suspect]
     Active Substance: MAGROLIMAB
     Indication: Myelodysplastic syndrome
     Route: 065
  3. VENETOCLAX [Suspect]
     Active Substance: VENETOCLAX
     Indication: Acute myeloid leukaemia
     Route: 065
  4. GILTERITINIB [Concomitant]
     Active Substance: GILTERITINIB
     Indication: Acute myeloid leukaemia
     Route: 065
  5. CYTARABINE\DAUNORUBICIN [Suspect]
     Active Substance: CYTARABINE\DAUNORUBICIN
     Indication: Acute myeloid leukaemia
     Route: 065

REACTIONS (2)
  - Drug ineffective [Fatal]
  - Treatment failure [Fatal]
